FAERS Safety Report 9772488 (Version 2)
Quarter: 2013Q4

REPORT INFORMATION
  Report Type: Report from Study
  Country: DE (occurrence: DE)
  Receive Date: 20131219
  Receipt Date: 20131219
  Transmission Date: 20140711
  Serious: Yes (Hospitalization)
  Sender: FDA-Public Use
  Company Number: DE-ABBVIE-13P-062-1123471-00

PATIENT
  Age: 27 Year
  Sex: Female
  Weight: 69 kg

DRUGS (8)
  1. LEVOTHYROXINE (LEVOTHYROXIN) [Suspect]
     Indication: THYROID DISORDER
     Route: 048
  2. HUMIRA [Suspect]
     Indication: CROHN^S DISEASE
     Route: 058
     Dates: start: 20120719, end: 20130613
  3. OMEPRAZOL [Suspect]
     Indication: PRODUCT USED FOR UNKNOWN INDICATION
  4. POSTERISAN AKUT [Concomitant]
     Indication: PRODUCT USED FOR UNKNOWN INDICATION
     Route: 054
     Dates: start: 20121120
  5. AZATHIOPRINE [Concomitant]
     Indication: PRODUCT USED FOR UNKNOWN INDICATION
     Dates: start: 20100621, end: 20131202
  6. SULFASALAZINE [Concomitant]
     Indication: PRODUCT USED FOR UNKNOWN INDICATION
     Dates: start: 20081201
  7. PREDNISOLONE [Concomitant]
     Indication: PRODUCT USED FOR UNKNOWN INDICATION
     Dosage: FROM 60 MG EVERY 7 TO 10 DAYS 5 TO 10 MG DECREASED
     Dates: start: 20130228, end: 20130619
  8. OSTEOPLUS [Concomitant]
     Indication: DRUG THERAPY
     Dates: start: 20130228, end: 20130618

REACTIONS (5)
  - Gastrointestinal disorder [Not Recovered/Not Resolved]
  - Crohn^s disease [Unknown]
  - Anal fissure [Unknown]
  - Crohn^s disease [Unknown]
  - Anal abscess [Unknown]
